FAERS Safety Report 4593819-8 (Version None)
Quarter: 2005Q1

REPORT INFORMATION
  Report Type: 
  Country: None (occurrence: None)
  Receive Date: 20050301
  Receipt Date: 20050216
  Transmission Date: 20050727
  Serious: Yes (Other)
  Sender: FDA-Public Use
  Company Number: US-AMGEN-US116098

PATIENT
  Sex: Female

DRUGS (3)
  1. ENBREL [Suspect]
     Indication: PSORIATIC ARTHROPATHY
     Dates: start: 20010701, end: 20030301
  2. BEXTRA [Concomitant]
  3. METHOTREXATE [Concomitant]

REACTIONS (4)
  - FIBROMYALGIA [None]
  - HERPES ZOSTER [None]
  - LYMPHOMA [None]
  - SQUAMOUS CELL CARCINOMA OF THE CERVIX [None]
